FAERS Safety Report 5162937-8 (Version None)
Quarter: 2006Q4

REPORT INFORMATION
  Report Type: 
  Country: None (occurrence: None)
  Receive Date: 20061201
  Receipt Date: 20061122
  Transmission Date: 20070319
  Serious: Yes (Hospitalization)
  Sender: FDA-Public Use
  Company Number: 2006UW26303

PATIENT
  Age: 65 Year
  Sex: Male
  Weight: 116 kg

DRUGS (14)
  1. SYMBICORT [Suspect]
     Indication: CHRONIC OBSTRUCTIVE PULMONARY DISEASE
     Dosage: 2 (80/4.5 MCG) BID
     Route: 055
     Dates: start: 20060316, end: 20060731
  2. STUDY PROCEDURE [Suspect]
  3. ALBUTEROL [Concomitant]
     Indication: CHRONIC OBSTRUCTIVE PULMONARY DISEASE
     Route: 055
     Dates: start: 20060316, end: 20060801
  4. ATROVENT [Concomitant]
     Indication: CHRONIC OBSTRUCTIVE PULMONARY DISEASE
     Route: 055
     Dates: start: 20060227, end: 20060820
  5. VITAMIN B-12 [Concomitant]
     Route: 048
  6. ASCORBIC ACID [Concomitant]
     Route: 048
  7. FOLIC ACID [Concomitant]
     Route: 048
  8. SIMVASTATIN [Concomitant]
     Indication: HYPERCHOLESTEROLAEMIA
     Route: 048
  9. FUROSEMIDE [Concomitant]
     Indication: POLYURIA
     Route: 048
     Dates: end: 20060807
  10. SPIRONOLACTONE [Concomitant]
     Indication: HYPERTENSION
     Route: 048
  11. ATENOLOL [Concomitant]
     Indication: HYPERTENSION
     Route: 048
     Dates: start: 20060807
  12. FELODIPINE [Concomitant]
     Indication: HYPERTENSION
     Route: 048
  13. PRILOSEC [Concomitant]
     Indication: GASTROOESOPHAGEAL REFLUX DISEASE
     Route: 048
  14. VISTARIL [Concomitant]
     Indication: ANXIETY
     Route: 048
     Dates: start: 20060101, end: 20060807

REACTIONS (5)
  - BLOOD PH DECREASED [None]
  - CHRONIC OBSTRUCTIVE PULMONARY DISEASE [None]
  - CONDITION AGGRAVATED [None]
  - LUNG NEOPLASM [None]
  - TREATMENT NONCOMPLIANCE [None]
